FAERS Safety Report 17478684 (Version 2)
Quarter: 2020Q1

REPORT INFORMATION
  Report Type: Spontaneous
  Country: IT (occurrence: IT)
  Receive Date: 20200229
  Receipt Date: 20200318
  Transmission Date: 20200409
  Serious: Yes (Hospitalization)
  Sender: FDA-Public Use
  Company Number: IT-ROCHE-2554506

PATIENT
  Age: 70 Year
  Sex: Male
  Weight: 59 kg

DRUGS (8)
  1. CLEXANE [Concomitant]
     Active Substance: ENOXAPARIN SODIUM
     Route: 065
  2. ATENOLOL HCL [Concomitant]
     Route: 065
  3. URSODEOXYCHOLIC ACID [Concomitant]
     Active Substance: URSODIOL
     Route: 065
  4. ATORVASTATINA [ATORVASTATIN] [Concomitant]
     Active Substance: ATORVASTATIN
     Route: 065
  5. ESBRIET [Suspect]
     Active Substance: PIRFENIDONE
     Indication: IDIOPATHIC PULMONARY FIBROSIS
     Route: 048
     Dates: start: 20171001, end: 20171231
  6. ESOMEPRAZOLO [Concomitant]
     Active Substance: ESOMEPRAZOLE
     Route: 065
  7. FOLINA [FOLIC ACID] [Concomitant]
     Active Substance: FOLIC ACID
     Route: 065
  8. RANEXA [Concomitant]
     Active Substance: RANOLAZINE
     Route: 065

REACTIONS (2)
  - Cholelithiasis [Recovered/Resolved]
  - Pancreatitis [Recovered/Resolved]

NARRATIVE: CASE EVENT DATE: 20171231
